FAERS Safety Report 16144809 (Version 1)
Quarter: 2019Q2

REPORT INFORMATION
  Report Type: Spontaneous
  Country: US (occurrence: US)
  Receive Date: 20190402
  Receipt Date: 20190402
  Transmission Date: 20190711
  Serious: No
  Sender: FDA-Public Use
  Company Number: US-LUPIN PHARMACEUTICALS INC.-2018-08441

PATIENT
  Age: 37 Year
  Sex: Male

DRUGS (1)
  1. SERTRALINE [Suspect]
     Active Substance: SERTRALINE HYDROCHLORIDE
     Indication: SLEEP-RELATED EATING DISORDER
     Dosage: 25 MG, QD, AT BEDTIME
     Route: 065

REACTIONS (2)
  - Erectile dysfunction [Recovering/Resolving]
  - Loss of libido [Recovering/Resolving]
